FAERS Safety Report 7872859 (Version 3)
Quarter: 2013Q3

REPORT INFORMATION
  Report Type: Spontaneous
  Country: GB (occurrence: GB)
  Receive Date: 20110325
  Receipt Date: 20130718
  Transmission Date: 20140515
  Serious: Yes (Death, Hospitalization)
  Sender: FDA-Public Use
  Company Number: GB-AMGEN-GBRCT2011015106

PATIENT
  Age: 74 Year
  Sex: Female
  Weight: 53.9 kg

DRUGS (9)
  1. PANITUMUMAB [Suspect]
     Indication: OESOPHAGEAL CARCINOMA
     Dosage: 9 MG/KG, Q3WK
     Route: 042
     Dates: start: 20110302, end: 20110309
  2. EPIRUBICIN [Concomitant]
     Indication: OESOPHAGEAL CARCINOMA
     Dosage: 50 MG/M2, UNK
     Route: 042
     Dates: start: 20110302, end: 20110309
  3. OXALIPLATIN [Concomitant]
     Indication: OESOPHAGEAL CARCINOMA
     Dosage: 100 MG/M2, UNK
     Route: 042
     Dates: start: 20110302, end: 20110309
  4. CAPECITABINE [Concomitant]
     Indication: OESOPHAGEAL CARCINOMA
     Dosage: 1000 MG/M2, QD
     Route: 048
     Dates: start: 20110302, end: 20110309
  5. FERROUS SULFATE [Concomitant]
     Dosage: UNK
     Dates: start: 1980
  6. FOLIC ACID [Concomitant]
  7. CALCICHEW [Concomitant]
     Dosage: UNK
     Dates: start: 2000
  8. MESALAZINE [Concomitant]
     Dosage: UNK
     Dates: start: 1980
  9. RANITIDINE [Concomitant]
     Dosage: UNK
     Dates: start: 1980

REACTIONS (2)
  - Neutropenic sepsis [Fatal]
  - Drug interaction [Unknown]
